FAERS Safety Report 8444788-1 (Version None)
Quarter: 2012Q2

REPORT INFORMATION
  Report Type: 
  Country: None (occurrence: None)
  Receive Date: 20120611
  Receipt Date: 20120526
  Transmission Date: 20120825
  Serious: Yes (Hospitalization)
  Sender: FDA-Public Use
  Company Number: 2012AP001619

PATIENT
  Age: 54 Year
  Sex: Female

DRUGS (3)
  1. LISINOPRIL [Suspect]
     Indication: HYPERTENSION
     Dosage: 5 MG;QD
  2. METFORMIN HCL [Suspect]
     Indication: TYPE 2 DIABETES MELLITUS
     Dosage: 1000 MG;BID
  3. SIMVASTATIN [Suspect]
     Indication: PRODUCT USED FOR UNKNOWN INDICATION
     Dosage: 20 MG;QD

REACTIONS (13)
  - RENAL FAILURE ACUTE [None]
  - HYPOTHERMIA [None]
  - SYNCOPE [None]
  - LACTIC ACIDOSIS [None]
  - RESPIRATORY FAILURE [None]
  - RESPIRATORY DISTRESS [None]
  - BLOOD GLUCOSE DECREASED [None]
  - HYPOTENSION [None]
  - SHOCK [None]
  - CULTURE URINE POSITIVE [None]
  - ESCHERICHIA TEST POSITIVE [None]
  - URINARY TRACT INFECTION [None]
  - ASTHENIA [None]
